FAERS Safety Report 4629115-X (Version None)
Quarter: 2005Q2

REPORT INFORMATION
  Report Type: 
  Country: None (occurrence: None)
  Receive Date: 20050404
  Receipt Date: 20050404
  Transmission Date: 20051028
  Serious: Yes (Hospitalization)
  Sender: FDA-Public Use
  Company Number: None

PATIENT
  Age: 53 Year
  Sex: Female
  Weight: 98 kg

DRUGS (2)
  1. TOPOTECAN [Suspect]
     Indication: OVARIAN CANCER
     Dosage: 7.5 MG D1-3 OF 21 DAY CYCLE (IV)
     Route: 042
     Dates: start: 20040823, end: 20041006
  2. CARBOPLATIN [Suspect]
     Dosage: 526 MG D3 OF 21 DAYS
     Dates: start: 20040823, end: 20041026

REACTIONS (4)
  - ANAEMIA [None]
  - CIRCULATORY COLLAPSE [None]
  - FEBRILE NEUTROPENIA [None]
  - VOMITING [None]
